FAERS Safety Report 9156797 (Version 1)
Quarter: 2013Q1

REPORT INFORMATION
  Report Type: Spontaneous
  Country: GB (occurrence: None)
  Receive Date: 20130206
  Receipt Date: 20130206
  Transmission Date: 20140127
  Serious: Yes (Hospitalization, Other)
  Sender: FDA-Public Use
  Company Number: AUR-APL-2013-01011

PATIENT
  Age: 60 Year
  Sex: Male

DRUGS (3)
  1. RIBAVIRIN (RIBAVIRIN) [Suspect]
     Indication: HEPATITIS C
     Dosage: (2 IN 1 D), ORAL
     Route: 048
     Dates: start: 20120703
  2. PEGINTERFERON ALFA-2B (PEGINTERFERON ALFA-2B) [Suspect]
     Indication: HEPATITIS C
     Dosage: (1 IN 1 WK), SUBCUTANTOUS
     Route: 058
     Dates: start: 20120703
  3. INCIVO [Suspect]
     Indication: HEPATITIS C
     Dosage: 2250 MG (750 MG, 3 IN 1 D), ORAL
     Route: 048
     Dates: start: 20120703, end: 20120925

REACTIONS (8)
  - Rash generalised [None]
  - Anaemia [None]
  - Eczema [None]
  - Fatigue [None]
  - Headache [None]
  - Pruritus [None]
  - Anorectal discomfort [None]
  - Haemorrhage [None]
